FAERS Safety Report 10529662 (Version 2)
Quarter: 2015Q1

REPORT INFORMATION
  Report Type: Spontaneous
  Country: US (occurrence: US)
  Receive Date: 20141021
  Receipt Date: 20150101
  Transmission Date: 20150720
  Serious: Yes (Hospitalization)
  Sender: FDA-Public Use
  Company Number: US-BIOGENIDEC-2014BI108478

PATIENT
  Age: 65 Year
  Sex: Female

DRUGS (2)
  1. TECFIDERA [Suspect]
     Active Substance: DIMETHYL FUMARATE
     Indication: MULTIPLE SCLEROSIS
     Route: 048
     Dates: start: 2014
  2. TECFIDERA [Suspect]
     Active Substance: DIMETHYL FUMARATE
     Indication: MULTIPLE SCLEROSIS
     Route: 048
     Dates: start: 2014

REACTIONS (7)
  - Multiple sclerosis relapse [Unknown]
  - Dizziness [Not Recovered/Not Resolved]
  - Intentional underdose [Unknown]
  - Speech disorder [Unknown]
  - Vertigo [Recovered/Resolved]
  - Gait disturbance [Unknown]
  - Balance disorder [Unknown]

NARRATIVE: CASE EVENT DATE: 2014
